FAERS Safety Report 5584677-3 (Version None)
Quarter: 2008Q1

REPORT INFORMATION
  Report Type: 
  Country: None (occurrence: None)
  Receive Date: 20080108
  Receipt Date: 20071227
  Transmission Date: 20080703
  Serious: Yes (Other)
  Sender: FDA-Public Use
  Company Number: GB-PFIZER INC-2007108680

PATIENT
  Sex: Male

DRUGS (2)
  1. GABAPENTIN [Suspect]
  2. OPIOIDS [Suspect]

REACTIONS (1)
  - DRUG WITHDRAWAL SYNDROME [None]
